FAERS Safety Report 16281622 (Version 1)
Quarter: 2019Q2

REPORT INFORMATION
  Report Type: Spontaneous
  Country: US (occurrence: US)
  Receive Date: 20190507
  Receipt Date: 20190507
  Transmission Date: 20190711
  Serious: No
  Sender: FDA-Public Use
  Company Number: US-PFIZER INC-2019190944

PATIENT
  Age: 61 Year
  Sex: Male

DRUGS (5)
  1. NAPROSYN [Suspect]
     Active Substance: NAPROXEN
     Dosage: UNK
  2. OMNICEF [Suspect]
     Active Substance: CEFDINIR
     Dosage: UNK
  3. GRALISE [Suspect]
     Active Substance: GABAPENTIN
     Dosage: UNK
  4. GABAPENTIN. [Suspect]
     Active Substance: GABAPENTIN
     Dosage: UNK
  5. CEFDINIR. [Suspect]
     Active Substance: CEFDINIR
     Dosage: UNK

REACTIONS (1)
  - Drug hypersensitivity [Unknown]
